FAERS Safety Report 20773578 (Version 1)
Quarter: 2022Q2

REPORT INFORMATION
  Report Type: Spontaneous
  Country: CZ (occurrence: CZ)
  Receive Date: 20220502
  Receipt Date: 20220502
  Transmission Date: 20220721
  Serious: Yes (Other)
  Sender: FDA-Public Use
  Company Number: None

PATIENT
  Age: 6 Year
  Sex: Female
  Weight: 22 kg

DRUGS (2)
  1. MONTELUKAST SODIUM [Suspect]
     Active Substance: MONTELUKAST SODIUM
     Indication: Asthma
     Dosage: 4 MG, QD (0-0-1)
     Route: 048
     Dates: start: 2019, end: 2021
  2. KETOF [Concomitant]
     Indication: Antiallergic therapy
     Dosage: 5 ML, QD (WHEN NEEDED)
     Route: 048
     Dates: start: 2019

REACTIONS (4)
  - Negativism [Recovered/Resolved]
  - Disturbance in social behaviour [Recovered/Resolved]
  - Behaviour disorder [Recovered/Resolved]
  - Sleep terror [Recovered/Resolved]

NARRATIVE: CASE EVENT DATE: 20190101
